FAERS Safety Report 9499904 (Version 1)
Quarter: 2013Q3

REPORT INFORMATION
  Report Type: Spontaneous
  Country: US (occurrence: US)
  Receive Date: 20130905
  Receipt Date: 20130905
  Transmission Date: 20140515
  Serious: Yes (Other)
  Sender: FDA-Public Use
  Company Number: US-UCBSA-096891

PATIENT
  Age: 58 Year
  Sex: Female

DRUGS (3)
  1. LEVETIRACETAM [Suspect]
     Indication: CONVULSION
  2. DEXAMETHASONE [Concomitant]
     Route: 048
  3. LORAZEPAM [Concomitant]
     Indication: NAUSEA

REACTIONS (2)
  - Mania [Recovered/Resolved]
  - Paranoia [Recovered/Resolved]
